FAERS Safety Report 18136509 (Version 5)
Quarter: 2020Q4

REPORT INFORMATION
  Report Type: Spontaneous
  Country: CZ (occurrence: CZ)
  Receive Date: 20200811
  Receipt Date: 20201109
  Transmission Date: 20210113
  Serious: Yes (Hospitalization, Other)
  Sender: FDA-Public Use
  Company Number: NVSC2020CZ221288

PATIENT
  Age: 18 Year
  Sex: Male

DRUGS (31)
  1. METHYLPREDNISOLONE. [Suspect]
     Active Substance: METHYLPREDNISOLONE
     Dosage: 4 MG, DAILY
     Route: 065
     Dates: start: 201712, end: 201806
  2. AZATHIOPRINE. [Concomitant]
     Active Substance: AZATHIOPRINE
     Indication: PEMPHIGUS
     Dosage: 100 MG, DAILY
     Route: 065
  3. AZATHIOPRINE. [Concomitant]
     Active Substance: AZATHIOPRINE
     Dosage: 200 MG, DAILY
     Route: 065
     Dates: start: 201602, end: 201603
  4. DOXYCYCLINE. [Concomitant]
     Active Substance: DOXYCYCLINE
     Dosage: 400 MG, DAILY
     Route: 065
  5. RISEDRONATE [Concomitant]
     Active Substance: RISEDRONATE SODIUM
     Indication: PRODUCT USED FOR UNKNOWN INDICATION
     Dosage: 35 MG, QW
     Route: 065
  6. METHYLPREDNISOLONE. [Suspect]
     Active Substance: METHYLPREDNISOLONE
     Dosage: 250 MG
     Route: 042
     Dates: start: 2015, end: 2015
  7. CYCLOPHOSPHAMIDE. [Concomitant]
     Active Substance: CYCLOPHOSPHAMIDE
     Indication: PEMPHIGUS
     Dosage: 150 MG, DAILY
     Route: 048
     Dates: start: 2016, end: 201609
  8. MYCOPHENOLATE MOFETIL. [Suspect]
     Active Substance: MYCOPHENOLATE MOFETIL
     Indication: PEMPHIGUS
     Dosage: 2 MG PER DAY AND TAPERED OFF
     Route: 065
     Dates: start: 2016, end: 2017
  9. RITUXIMAB. [Suspect]
     Active Substance: RITUXIMAB
     Dosage: 500 MG
     Route: 065
     Dates: start: 201804, end: 201804
  10. PREDNISONE. [Suspect]
     Active Substance: PREDNISONE
     Indication: PEMPHIGUS
     Dosage: 90 MG, DAILY
     Route: 065
     Dates: start: 2015
  11. UNDECYLENAMIDOPROPYL BETAINE [Concomitant]
     Indication: STAPHYLOCOCCAL INFECTION
     Dosage: UNK
     Route: 065
  12. RITUXIMAB. [Suspect]
     Active Substance: RITUXIMAB
     Dosage: 1000 MG
     Route: 041
     Dates: start: 201707, end: 201707
  13. METHYLPREDNISOLONE. [Suspect]
     Active Substance: METHYLPREDNISOLONE
     Indication: PEMPHIGUS
     Dosage: 16 MG PER DAY
     Route: 065
  14. METHYLPREDNISOLONE. [Suspect]
     Active Substance: METHYLPREDNISOLONE
     Dosage: 12 MG, DAILY
     Route: 065
     Dates: start: 2016, end: 201609
  15. PREDNISONE. [Suspect]
     Active Substance: PREDNISONE
     Dosage: 65 MG, DAILY
     Route: 065
     Dates: start: 201602
  16. POLYAMINOPROPYL BIGUANIDE [Concomitant]
     Active Substance: POLYAMINOPROPYL BIGUANIDE
     Indication: STAPHYLOCOCCAL INFECTION
     Dosage: UNK
     Route: 065
  17. RITUXIMAB. [Suspect]
     Active Substance: RITUXIMAB
     Dosage: 500 MG
     Route: 065
     Dates: start: 201810
  18. METHYLPREDNISOLONE. [Suspect]
     Active Substance: METHYLPREDNISOLONE
     Dosage: 8 MG, DAILY
     Route: 065
     Dates: start: 2017
  19. PREDNISONE. [Suspect]
     Active Substance: PREDNISONE
     Dosage: 55 MG, DAILY
     Route: 065
     Dates: start: 2016
  20. CALCIUM [Concomitant]
     Active Substance: CALCIUM
     Indication: OSTEOPOROSIS PROPHYLAXIS
     Dosage: UNK
     Route: 065
  21. VITAMIN D3 [Concomitant]
     Active Substance: CHOLECALCIFEROL
     Indication: PRODUCT USED FOR UNKNOWN INDICATION
     Dosage: UNK, 15 DROPS 3 TIMES A WEEK
     Route: 065
  22. NIACINAMIDE [Concomitant]
     Active Substance: NIACINAMIDE
     Indication: PRODUCT USED FOR UNKNOWN INDICATION
     Dosage: UNK
     Route: 065
  23. RITUXIMAB. [Suspect]
     Active Substance: RITUXIMAB
     Indication: PEMPHIGUS
     Dosage: 1000 MG (1ST DOSE) AND 2ND AFTER 14 D
     Route: 041
     Dates: start: 201706
  24. METHYLPREDNISOLONE. [Suspect]
     Active Substance: METHYLPREDNISOLONE
     Dosage: UNK
     Route: 065
     Dates: start: 2016, end: 2016
  25. METHYLPREDNISOLONE. [Suspect]
     Active Substance: METHYLPREDNISOLONE
     Dosage: 36 MG, DAILY
     Route: 065
     Dates: start: 2016, end: 2016
  26. PREDNISONE. [Suspect]
     Active Substance: PREDNISONE
     Dosage: 50 MG, DAILY
     Route: 065
  27. TERIPARATIDE [Concomitant]
     Active Substance: TERIPARATIDE
     Indication: ADJUVANT THERAPY
     Dosage: 20 UG, QD
     Route: 058
     Dates: start: 201605, end: 201805
  28. METHYLPREDNISOLONE. [Suspect]
     Active Substance: METHYLPREDNISOLONE
     Dosage: 32 MG, DAILY
     Route: 065
     Dates: start: 201609
  29. DOXYCYCLINE. [Concomitant]
     Active Substance: DOXYCYCLINE
     Indication: STAPHYLOCOCCAL INFECTION
     Dosage: 200 MG, DAILY
     Route: 065
  30. CYCLOPHOSPHAMIDE. [Concomitant]
     Active Substance: CYCLOPHOSPHAMIDE
     Dosage: 600 MG,PULSE T, RPTD AFTR 6W AT SAME DS
     Route: 042
     Dates: start: 201604, end: 2016
  31. SOLU-MEDROL [Concomitant]
     Active Substance: METHYLPREDNISOLONE SODIUM SUCCINATE
     Indication: PRODUCT USED FOR UNKNOWN INDICATION
     Dosage: 250 MG, PULSE THERAPY
     Route: 042

REACTIONS (12)
  - Osteoporosis [Unknown]
  - Skin striae [Unknown]
  - Spinal fracture [Unknown]
  - Jaw cyst [Recovered/Resolved]
  - Cushing^s syndrome [Unknown]
  - Product use in unapproved indication [Unknown]
  - Pemphigus [Recovered/Resolved]
  - Acne [Unknown]
  - Pathological fracture [Unknown]
  - Off label use [Unknown]
  - Impaired healing [Recovered/Resolved]
  - Intentional product use issue [Unknown]

NARRATIVE: CASE EVENT DATE: 201801
